FAERS Safety Report 20559162 (Version 2)
Quarter: 2022Q1

REPORT INFORMATION
  Report Type: Spontaneous
  Country: CN (occurrence: CN)
  Receive Date: 20220307
  Receipt Date: 20220322
  Transmission Date: 20220423
  Serious: Yes (Hospitalization, Other)
  Sender: FDA-Public Use
  Company Number: CN-ELI_LILLY_AND_COMPANY-CN202202009703

PATIENT
  Age: 64 Year
  Sex: Male
  Weight: 70 kg

DRUGS (2)
  1. HUMALOG MIX75/25 [Suspect]
     Active Substance: INSULIN LISPRO
     Indication: Diabetes mellitus
     Dosage: 14 U, EACH MORNING
     Route: 058
     Dates: start: 2012
  2. HUMALOG MIX75/25 [Suspect]
     Active Substance: INSULIN LISPRO
     Dosage: 14 U, DAILY (NIGHT)
     Route: 058
     Dates: start: 2012

REACTIONS (6)
  - Cerebral infarction [Unknown]
  - Retinal haemorrhage [Unknown]
  - Vomiting [Unknown]
  - Palpitations [Unknown]
  - Regurgitation [Unknown]
  - Heart rate decreased [Unknown]
